FAERS Safety Report 14281511 (Version 1)
Quarter: 2017Q4

REPORT INFORMATION
  Report Type: Other
  Country: US (occurrence: US)
  Receive Date: 20171213
  Receipt Date: 20171213
  Transmission Date: 20180321
  Serious: Yes (Life-Threatening, Other)
  Sender: FDA-Public Use
  Company Number: US-ALSI-201700447

PATIENT
  Age: 25 Year
  Sex: Male

DRUGS (2)
  1. KETAMINE [Suspect]
     Active Substance: KETAMINE
  2. HELIOX [Suspect]
     Active Substance: OXYGEN
     Indication: STATUS ASTHMATICUS

REACTIONS (10)
  - Respiratory acidosis [None]
  - Pneumonia [None]
  - Pulmonary embolism [None]
  - Pneumothorax [None]
  - Asthma [None]
  - Condition aggravated [None]
  - Respiratory failure [None]
  - Status asthmaticus [None]
  - Pulmonary oedema [None]
  - Drug ineffective [None]
